FAERS Safety Report 8911293 (Version 1)
Quarter: 2012Q4

REPORT INFORMATION
  Report Type: 
  Country: US (occurrence: US)
  Receive Date: 20121116
  Receipt Date: 20121116
  Transmission Date: 20130627
  Serious: Yes (Other)
  Sender: FDA-Public Use
  Company Number: US-GLAXOSMITHKLINE-A0995828A

PATIENT
  Age: 62 Year
  Sex: Male

DRUGS (5)
  1. VOTRIENT [Suspect]
     Indication: RENAL CELL CARCINOMA
     Dosage: 800MG Per day
     Route: 048
     Dates: start: 20121002, end: 20121016
  2. LIVALO [Concomitant]
  3. ASPIRIN [Concomitant]
  4. ENALAPRIL [Concomitant]
  5. OMEPRAZOLE [Concomitant]

REACTIONS (8)
  - Haemorrhoidal haemorrhage [Not Recovered/Not Resolved]
  - Constipation [Unknown]
  - Oropharyngeal pain [Unknown]
  - Hypoaesthesia oral [Unknown]
  - Hypertension [Unknown]
  - Dry mouth [Unknown]
  - Impaired healing [Recovering/Resolving]
  - Blood pressure increased [Not Recovered/Not Resolved]
